FAERS Safety Report 23143872 (Version 1)
Quarter: 2023Q4

REPORT INFORMATION
  Report Type: Spontaneous
  Country: US (occurrence: None)
  Receive Date: 20231102
  Receipt Date: 20231102
  Transmission Date: 20240110
  Serious: No
  Sender: FDA-Public Use
  Company Number: None

PATIENT

DRUGS (2)
  1. KETOROLAC [Suspect]
     Active Substance: KETOROLAC TROMETHAMINE
  2. HALOPERIDOL [Suspect]
     Active Substance: HALOPERIDOL

REACTIONS (5)
  - Product packaging confusion [None]
  - Wrong product stored [None]
  - Product label confusion [None]
  - Product supply issue [None]
  - Intercepted product dispensing error [None]
